FAERS Safety Report 8030158-7 (Version None)
Quarter: 2012Q1

REPORT INFORMATION
  Report Type: 
  Country: None (occurrence: None)
  Receive Date: 20120105
  Receipt Date: 20111222
  Transmission Date: 20120608
  Serious: Yes (Hospitalization, Other)
  Sender: FDA-Public Use
  Company Number: 2011MA017992

PATIENT
  Age: 45 Year
  Sex: Female
  Weight: 80.2867 kg

DRUGS (92)
  1. ACYCLOVIR [Concomitant]
  2. DAPSONE [Concomitant]
  3. GABAPENTIN [Concomitant]
  4. LIDODERM [Concomitant]
  5. PROMETHAZINE [Concomitant]
  6. THEOPHYLLINE [Concomitant]
  7. TOPAMAX [Concomitant]
  8. VANTIN [Concomitant]
  9. FLOMAX [Concomitant]
  10. KEPPRA [Concomitant]
  11. SOMA [Concomitant]
  12. STEROID INJECTION [Concomitant]
  13. CLEAR COAT EYE DROPS [Concomitant]
  14. AMOXICILLIN [Concomitant]
  15. CEFDINIR [Concomitant]
  16. TUSSIONEX [Concomitant]
  17. PHENERGAN [Concomitant]
  18. KEFLEX [Concomitant]
  19. AMITEX LA [Concomitant]
  20. LEVAQUIN [Concomitant]
  21. QVAR 40 [Concomitant]
  22. OXYCONTIN [Concomitant]
  23. LEXAPRO [Concomitant]
  24. KLONOPIN [Concomitant]
  25. CARAFATE [Concomitant]
  26. ADVAIR DISKUS 100/50 [Concomitant]
  27. CARISOPRODOL [Concomitant]
  28. CIPROFLOXACIN [Concomitant]
  29. EPIDRIN [Concomitant]
  30. FLUCONAZOLE [Concomitant]
  31. LISINOPRIL [Concomitant]
  32. MECLIZINE [Concomitant]
  33. PANLOR [Concomitant]
  34. PREDNISONE TAB [Concomitant]
  35. SEROQUEL [Concomitant]
  36. NEURONTIN [Concomitant]
  37. M.V.I. [Concomitant]
  38. LIDOCAINE [Concomitant]
  39. LORTAB [Concomitant]
  40. VIMPAT [Concomitant]
  41. ALBUTEROL [Concomitant]
  42. DETROL LA [Concomitant]
  43. ENABLEX [Concomitant]
  44. ESTRATEST [Concomitant]
  45. FUROSEMIDE [Concomitant]
  46. INDOMETHACIN [Concomitant]
  47. INSULIN [Concomitant]
  48. KETOROLAC TROMETHAMINE [Concomitant]
  49. LYRICA [Concomitant]
  50. OXYCONTIN [Concomitant]
  51. TIZANIDINE HCL [Concomitant]
  52. ZYRTEC [Concomitant]
  53. LEVSIN [Concomitant]
  54. ROBAXIN [Concomitant]
  55. BACTRIM [Concomitant]
  56. MOBIC [Concomitant]
  57. METOCLOPRAMIDE [Suspect]
     Indication: IMPAIRED GASTRIC EMPTYING
     Dosage: 10 MG;QID;PO
     Route: 048
     Dates: start: 20030723, end: 20100408
  58. METOCLOPRAMIDE [Suspect]
     Indication: GASTROOESOPHAGEAL REFLUX DISEASE
     Dosage: 10 MG;QID;PO
     Route: 048
     Dates: start: 20030723, end: 20100408
  59. METOCLOPRAMIDE [Suspect]
     Indication: NAUSEA
     Dosage: 10 MG;QID;PO
     Route: 048
     Dates: start: 20030723, end: 20100408
  60. ALLEGRA [Concomitant]
  61. AMITRIPTYLINE HCL [Concomitant]
  62. BENZONATE [Concomitant]
  63. CEPHALEXIN [Concomitant]
  64. CHANTIX [Concomitant]
  65. DOXYCYCLINE [Concomitant]
  66. EFFEXOR [Concomitant]
  67. LAMISIL [Concomitant]
  68. MEPROZINE [Concomitant]
  69. METHYLPREDNISOLONE [Concomitant]
  70. NEXIUM [Concomitant]
  71. PANTOPRAZOLE [Concomitant]
  72. SUCRALFATE [Concomitant]
  73. ZITHROMAX [Concomitant]
  74. DIOVAN [Concomitant]
  75. LASIX [Concomitant]
  76. CHERATUSSIN AC [Concomitant]
  77. CLINDAMYCIN [Concomitant]
  78. EEMT DS [Concomitant]
  79. LEVOTHYROXINE SODIUM [Concomitant]
  80. LORAZEPAM [Concomitant]
  81. POLY-TUSSIN DHC [Concomitant]
  82. PROTONIX [Concomitant]
  83. SEROQUEL [Concomitant]
  84. SULFAMETHOXAZOLE AND TRIMETHOPRIM [Concomitant]
  85. RISPERDAL [Concomitant]
  86. AVELOX [Concomitant]
  87. AZITHROMYCIN [Concomitant]
  88. FLUTICASONE FUROATE [Concomitant]
  89. HYDROCODONE BITARTRATE AND ACETAMINOPHEN [Concomitant]
  90. ZANAFLEX [Concomitant]
  91. DURAGESIC-100 [Concomitant]
  92. ULTRAM [Concomitant]

REACTIONS (27)
  - BACK PAIN [None]
  - INTERVERTEBRAL DISC PROTRUSION [None]
  - EXCESSIVE EYE BLINKING [None]
  - CONSTIPATION [None]
  - TARDIVE DYSKINESIA [None]
  - GASTROINTESTINAL DISORDER [None]
  - NECK PAIN [None]
  - RADICULOPATHY [None]
  - TARSAL TUNNEL SYNDROME [None]
  - ARACHNOIDITIS [None]
  - OEDEMA PERIPHERAL [None]
  - INTERVERTEBRAL DISC DEGENERATION [None]
  - VERTEBRAL FORAMINAL STENOSIS [None]
  - ANXIETY [None]
  - SPINAL OSTEOARTHRITIS [None]
  - ARTHRALGIA [None]
  - LIP INFECTION [None]
  - DYSTONIA [None]
  - PAIN [None]
  - STAPHYLOCOCCAL INFECTION [None]
  - CERVICOBRACHIAL SYNDROME [None]
  - EMOTIONAL DISORDER [None]
  - MUSCULOSKELETAL PAIN [None]
  - IMPAIRED GASTRIC EMPTYING [None]
  - HEADACHE [None]
  - VOMITING [None]
  - PAIN IN EXTREMITY [None]
